FAERS Safety Report 8562669 (Version 2)
Quarter: 2014Q2

REPORT INFORMATION
  Report Type: Report from Study
  Country: JP (occurrence: JP)
  Receive Date: 20120515
  Receipt Date: 20140506
  Transmission Date: 20141212
  Serious: Yes (Hospitalization)
  Sender: FDA-Public Use
  Company Number: JP-ACTELION-A-CH2010-38766

PATIENT
  Age: 87 Year
  Sex: Female
  Weight: 44 kg

DRUGS (9)
  1. TRACLEER [Suspect]
     Indication: PULMONARY ARTERIAL HYPERTENSION
     Dosage: 62.5 MG, QD
     Route: 048
     Dates: start: 20091128, end: 20100511
  2. TRACLEER [Suspect]
     Dosage: 62.5 MG, QD
     Route: 048
     Dates: start: 20110201, end: 20110522
  3. ALFACALCIDOL [Concomitant]
  4. MENATETRENONE [Concomitant]
  5. SARPOGRELATE HYDROCHLORIDE [Concomitant]
  6. REBAMIPIDE [Concomitant]
  7. FUROSEMIDE [Concomitant]
  8. MONTELUKAST SODIUM [Concomitant]
  9. RISEDRONATE SODIUM [Concomitant]

REACTIONS (3)
  - Skin ulcer [Recovering/Resolving]
  - Condition aggravated [Recovering/Resolving]
  - Dizziness [Not Recovered/Not Resolved]
